FAERS Safety Report 13141764 (Version 2)
Quarter: 2017Q1

REPORT INFORMATION
  Report Type: Report from Study
  Country: US (occurrence: US)
  Receive Date: 20170124
  Receipt Date: 20170202
  Transmission Date: 20170428
  Serious: Yes (Other)
  Sender: FDA-Public Use
  Company Number: US-BAYER-2017-008191

PATIENT
  Age: 57 Year
  Sex: Male

DRUGS (1)
  1. BETASERON [Suspect]
     Active Substance: INTERFERON BETA-1B
     Indication: CLINICALLY ISOLATED SYNDROME
     Dosage: 8 MIU, QOD
     Route: 058
     Dates: start: 20140816

REACTIONS (4)
  - Thyroidectomy [None]
  - Chest discomfort [Not Recovered/Not Resolved]
  - Heart rate increased [None]
  - Blood pressure fluctuation [None]

NARRATIVE: CASE EVENT DATE: 201612
